FAERS Safety Report 12790387 (Version 2)
Quarter: 2016Q4

REPORT INFORMATION
  Report Type: Spontaneous
  Country: FR (occurrence: FR)
  Receive Date: 20160928
  Receipt Date: 20161024
  Transmission Date: 20170207
  Serious: Yes (Hospitalization)
  Sender: FDA-Public Use
  Company Number: FR-009507513-1609FRA011630

PATIENT
  Age: 83 Year
  Sex: Male

DRUGS (9)
  1. ALLOPURINOL. [Concomitant]
     Active Substance: ALLOPURINOL
  2. IRBESARTAN. [Concomitant]
     Active Substance: IRBESARTAN
  3. KEYTRUDA [Suspect]
     Active Substance: PEMBROLIZUMAB
     Indication: MALIGNANT MELANOMA
     Dosage: 1 DF, QM
     Route: 042
     Dates: start: 20160211, end: 20160719
  4. EUPRESSYL [Concomitant]
     Active Substance: URAPIDIL
  5. NEBIVOLOL. [Concomitant]
     Active Substance: NEBIVOLOL
  6. TAHOR [Concomitant]
     Active Substance: ATORVASTATIN CALCIUM
  7. LASILIX [Concomitant]
     Active Substance: FUROSEMIDE
  8. KARDEGIC [Concomitant]
     Active Substance: ASPIRIN LYSINE
  9. ZANIDIP [Concomitant]
     Active Substance: LERCANIDIPINE HYDROCHLORIDE

REACTIONS (1)
  - Hepatitis E [Recovering/Resolving]

NARRATIVE: CASE EVENT DATE: 20160805
